FAERS Safety Report 7450033-6 (Version None)
Quarter: 2011Q2

REPORT INFORMATION
  Report Type: 
  Country: None (occurrence: None)
  Receive Date: 20110502
  Receipt Date: 20091113
  Transmission Date: 20111010
  Serious: Yes (Death, Other)
  Sender: FDA-Public Use
  Company Number: US-BAYER-200939674NA

PATIENT
  Age: 76 Year
  Sex: Female
  Weight: 81.633 kg

DRUGS (13)
  1. TRASYLOL [Suspect]
     Indication: CORONARY ARTERY BYPASS
     Dosage: TEST DOSE 1ML STARTED @ 0720, LOADING DOSE 200ML OVER 20 MINUTES, FOLLOWED BY DRIP 50ML/HR
     Route: 042
     Dates: start: 20040611, end: 20040611
  2. HEPARIN [Concomitant]
     Dosage: 32,500 UNITS
     Route: 042
     Dates: start: 20040611
  3. FUROSEMIDUM [FUROSEMIDE] [Concomitant]
     Dosage: 40 MG, QD
     Route: 048
  4. MILRINONE [Concomitant]
     Dosage: 0.375MCG/KG/ML
     Route: 042
     Dates: start: 20040611
  5. TRASYLOL [Suspect]
     Indication: MITRAL VALVE REPAIR
  6. ACCUPRIL [Concomitant]
     Dosage: 10 MG, QD
     Route: 048
  7. PRANDIN [DEFLAZACORT] [Concomitant]
     Route: 048
  8. ASPIRIN [Concomitant]
     Dosage: UNK
     Route: 048
  9. INSULIN [INSULIN] [Concomitant]
     Dosage: UNK
     Route: 042
     Dates: start: 20040611
  10. PROTAMINE SULFATE [Concomitant]
     Dosage: UNK
     Route: 042
     Dates: start: 20040611
  11. TRASYLOL [Suspect]
     Indication: MITRAL VALVE REPLACEMENT
  12. CARDIZEM [Concomitant]
     Dosage: 240 MG, QD
     Route: 048
  13. ZOCOR [Concomitant]
     Dosage: 20 MG, QD
     Route: 048

REACTIONS (14)
  - RENAL IMPAIRMENT [None]
  - PAIN [None]
  - RENAL FAILURE [None]
  - RENAL FAILURE ACUTE [None]
  - STRESS [None]
  - MULTI-ORGAN FAILURE [None]
  - EMOTIONAL DISTRESS [None]
  - UNEVALUABLE EVENT [None]
  - DEATH [None]
  - RENAL INJURY [None]
  - ANXIETY [None]
  - FEAR [None]
  - ANHEDONIA [None]
  - INJURY [None]
